FAERS Safety Report 5557379-7 (Version None)
Quarter: 2007Q4

REPORT INFORMATION
  Report Type: 
  Country: None (occurrence: None)
  Receive Date: 20071211
  Receipt Date: 20071203
  Transmission Date: 20080405
  Serious: Yes (Death, Hospitalization)
  Sender: FDA-Public Use
  Company Number: 2007SP024306

PATIENT
  Age: 63 Year
  Sex: Male

DRUGS (3)
  1. PEG-INTRON [Suspect]
     Indication: HEPATITIS C
     Dosage: 30 MCG;QW;SC
     Route: 058
     Dates: start: 20061003, end: 20071005
  2. REBETOL [Suspect]
     Indication: HEPATITIS C
     Dosage: 200 MG;QD;PO
     Route: 048
     Dates: start: 20061003, end: 20071005
  3. OLMETEC [Concomitant]

REACTIONS (3)
  - CEREBRAL HAEMORRHAGE [None]
  - HEPATIC NEOPLASM MALIGNANT [None]
  - HYPERTENSION [None]
